FAERS Safety Report 7420967-7 (Version None)
Quarter: 2011Q2

REPORT INFORMATION
  Report Type: 
  Country: None (occurrence: None)
  Receive Date: 20110418
  Receipt Date: 20110413
  Transmission Date: 20111010
  Serious: Yes (Other)
  Sender: FDA-Public Use
  Company Number: US-ROCHE-751889

PATIENT
  Sex: Male
  Weight: 74.8 kg

DRUGS (8)
  1. RITALIN [Concomitant]
  2. BACTROBAN [Concomitant]
     Indication: SKIN INFECTION
  3. ZOLOFT [Concomitant]
     Indication: DEPRESSION
     Dates: start: 19940101
  4. THORAZINE [Concomitant]
     Indication: ANXIETY
     Dates: start: 19960101
  5. ACCUTANE [Suspect]
     Indication: ACNE
     Route: 065
     Dates: start: 19960427, end: 19960920
  6. BANEX [Concomitant]
     Indication: NASAL CONGESTION
  7. GUAIFENESIN [Concomitant]
  8. APO-LORAZEPAM [Concomitant]
     Indication: ANXIETY

REACTIONS (4)
  - ANXIETY [None]
  - COLITIS ULCERATIVE [None]
  - PROCTOCOLITIS [None]
  - PROCTITIS [None]
